FAERS Safety Report 6557318-6 (Version None)
Quarter: 2010Q1

REPORT INFORMATION
  Report Type: 
  Country: None (occurrence: None)
  Receive Date: 20100129
  Receipt Date: 20100119
  Transmission Date: 20100710
  Serious: Yes (Other)
  Sender: FDA-Public Use
  Company Number: US-WYE-H13074410

PATIENT
  Sex: Female

DRUGS (2)
  1. PRISTIQ [Suspect]
     Indication: DEPRESSION
     Route: 048
     Dates: start: 20091001, end: 20100107
  2. PRISTIQ [Suspect]
     Route: 048
     Dates: start: 20100118

REACTIONS (8)
  - CONDITION AGGRAVATED [None]
  - CONVULSION [None]
  - DRUG WITHDRAWAL SYNDROME [None]
  - FEELING ABNORMAL [None]
  - IRRITABILITY [None]
  - MOOD ALTERED [None]
  - STARING [None]
  - UNRESPONSIVE TO STIMULI [None]
